FAERS Safety Report 8915526 (Version 2)
Quarter: 2012Q4

REPORT INFORMATION
  Report Type: 
  Country: US (occurrence: US)
  Receive Date: 20121119
  Receipt Date: 20121221
  Transmission Date: 20130627
  Serious: Yes (Other)
  Sender: FDA-Public Use
  Company Number: US-BAYER-2012-118532

PATIENT
  Age: 31 Year
  Sex: Female
  Weight: 77.55 kg

DRUGS (1)
  1. MIRENA [Suspect]
     Indication: CONTRACEPTION
     Dosage: 20 mcg/24hr, CONT
     Route: 015
     Dates: start: 20110223, end: 20121107

REACTIONS (2)
  - Ectopic pregnancy [None]
  - Drug ineffective [None]
